FAERS Safety Report 4356042-8 (Version None)
Quarter: 2004Q2

REPORT INFORMATION
  Report Type: 
  Country: None (occurrence: None)
  Receive Date: 20040505
  Receipt Date: 20040428
  Transmission Date: 20050107
  Serious: Yes (Hospitalization)
  Sender: FDA-Public Use
  Company Number: 2004211049US

PATIENT
  Sex: Female

DRUGS (3)
  1. DEPO-MEDROL [Suspect]
     Dosage: 80 MG, SINGLE, EPIDURAL
     Route: 008
     Dates: start: 20040414, end: 20040414
  2. MARCANE (BUPIVACAINE) [Concomitant]
  3. DEMEROL [Concomitant]

REACTIONS (14)
  - BLOOD PRESSURE DECREASED [None]
  - CEREBROSPINAL FLUID LEAKAGE [None]
  - DYSPNOEA [None]
  - FEELING ABNORMAL [None]
  - HEADACHE [None]
  - HYPOAESTHESIA [None]
  - LOSS OF LIBIDO [None]
  - MEDICATION ERROR [None]
  - NAUSEA [None]
  - PAIN IN EXTREMITY [None]
  - PYREXIA [None]
  - RASH ERYTHEMATOUS [None]
  - VISION BLURRED [None]
  - VISUAL DISTURBANCE [None]
